FAERS Safety Report 9416119 (Version 2)
Quarter: 2013Q3

REPORT INFORMATION
  Report Type: Spontaneous
  Country: US (occurrence: None)
  Receive Date: 20130717
  Receipt Date: 20130912
  Transmission Date: 20140515
  Serious: Yes (Hospitalization)
  Sender: FDA-Public Use
  Company Number: 2013P1011212

PATIENT
  Age: 33 Year
  Sex: Male

DRUGS (1)
  1. AMPHETAMINE [Suspect]
     Indication: ATTENTION DEFICIT/HYPERACTIVITY DISORDER
     Route: 048
     Dates: start: 1998, end: 20130614

REACTIONS (8)
  - Asthenia [None]
  - Fatigue [None]
  - Hypoaesthesia [None]
  - Vascular graft [None]
  - Pulse absent [None]
  - Arterial occlusive disease [None]
  - Congestive cardiomyopathy [None]
  - Hypoaesthesia [None]
